FAERS Safety Report 4861033-4 (Version None)
Quarter: 2005Q4

REPORT INFORMATION
  Report Type: 
  Country: None (occurrence: None)
  Receive Date: 20051216
  Receipt Date: 20051207
  Transmission Date: 20060501
  Serious: Yes (Life-Threatening, Hospitalization)
  Sender: FDA-Public Use
  Company Number: 220138

PATIENT
  Age: 69 Year
  Sex: Male
  Weight: 94 kg

DRUGS (3)
  1. AVASTIN [Suspect]
     Indication: COLORECTAL CANCER
     Dosage: 450 MG, INTRAVENOUS
     Route: 042
     Dates: start: 20050929, end: 20050929
  2. ELOXATIN [Suspect]
     Indication: COLORECTAL CANCER
     Dosage: 170 MG, INTRAVENOUS
     Route: 042
     Dates: start: 20050929, end: 20050929
  3. ELVORINE(LEVOLEUCOVORIN CALCIUM) [Suspect]
     Indication: COLORECTAL CANCER
     Dosage: 400 MG, INTRAVENOUS
     Route: 042
     Dates: start: 20050929, end: 20050929

REACTIONS (1)
  - ANAPHYLACTIC SHOCK [None]
